FAERS Safety Report 8779522 (Version 2)
Quarter: 2012Q4

REPORT INFORMATION
  Report Type: 
  Country: CO (occurrence: CO)
  Receive Date: 20120912
  Receipt Date: 20121102
  Transmission Date: 20130627
  Serious: Yes (Other)
  Sender: FDA-Public Use
  Company Number: CO-PFIZER INC-2012224173

PATIENT
  Age: 41 Year
  Sex: Female

DRUGS (7)
  1. LYRICA [Suspect]
     Indication: DEPRESSION
     Dosage: 2 tablets at 75 mg, 1x/day
     Route: 048
     Dates: start: 201207
  2. LYRICA [Suspect]
     Indication: ANXIETY
  3. LYRICA [Suspect]
     Indication: SLEEP DISORDER
  4. EUTIROX [Concomitant]
     Indication: HYPOTHYROIDISM
     Dosage: 25 mg, 1x/day
     Route: 048
     Dates: start: 201207
  5. OMEPRAZOL [Concomitant]
     Indication: GASTRITIS
     Dosage: 2 tablets at 40 mg, 1x/day
     Route: 048
     Dates: start: 201207
  6. ALPRAZOLAM [Concomitant]
     Indication: DEPRESSION
     Dosage: 0.5 mg, 1x/day
     Route: 048
     Dates: start: 201207
  7. AMITRIPTYLINE [Concomitant]
     Indication: SLEEP DISORDER
     Dosage: 25 mg, 1x/day
     Route: 048
     Dates: start: 201207

REACTIONS (4)
  - Gallbladder disorder [Unknown]
  - Headache [Recovering/Resolving]
  - Malaise [Recovering/Resolving]
  - Depression [Recovering/Resolving]
